FAERS Safety Report 8058032-0 (Version None)
Quarter: 2012Q1

REPORT INFORMATION
  Report Type: 
  Country: None (occurrence: None)
  Receive Date: 20120113
  Receipt Date: 20120104
  Transmission Date: 20120608
  Serious: Yes (Other)
  Sender: FDA-Public Use
  Company Number: FRP10001104

PATIENT
  Age: 62 Year
  Sex: Female
  Weight: 41 kg

DRUGS (9)
  1. SPECIAFOLDINE (FOLIC ACID) [Concomitant]
  2. CALCIUM CARBONATE [Concomitant]
  3. L-TYROSINE (TYROSINE) [Concomitant]
  4. NICARDIPINE HYDROCHLORIDE [Concomitant]
  5. CROMOGLYCATE DISODIUM (CROMOGLICATE SODIUM) [Concomitant]
  6. MYOLASTAN (TETRAZEPAM) [Concomitant]
  7. DEDROGYL (CALCIFEDIOL) [Concomitant]
  8. CELECTOL (CELIPROLOL HYDROCHLORIDE) [Concomitant]
  9. ACTONEL [Suspect]
     Indication: OSTEOPOROSIS
     Dosage: 2 TABLET, 1 /MONTH, ORAL
     Route: 048
     Dates: start: 20100516, end: 20100617

REACTIONS (6)
  - PAIN [None]
  - TOOTH DISORDER [None]
  - TOOTH DECALCIFICATION [None]
  - TOOTH EROSION [None]
  - TOOTH DISCOLOURATION [None]
  - ORAL DISCOMFORT [None]
